FAERS Safety Report 21735026 (Version 1)
Quarter: 2022Q4

REPORT INFORMATION
  Report Type: Spontaneous
  Country: US (occurrence: US)
  Receive Date: 20221215
  Receipt Date: 20221215
  Transmission Date: 20230112
  Serious: Yes (Disabling)
  Sender: FDA-Public Use
  Company Number: US-PFIZER INC-PV202200122955

PATIENT

DRUGS (1)
  1. PRISTIQ EXTENDED-RELEASE [Suspect]
     Active Substance: DESVENLAFAXINE SUCCINATE
     Dosage: UNK

REACTIONS (8)
  - Lymphoedema [Not Recovered/Not Resolved]
  - COVID-19 [Unknown]
  - Peripheral venous disease [Unknown]
  - Lymphatic disorder [Unknown]
  - Pain [Unknown]
  - Loss of personal independence in daily activities [Unknown]
  - Gait disturbance [Unknown]
  - Dysstasia [Unknown]

NARRATIVE: CASE EVENT DATE: 20200101
